FAERS Safety Report 15644230 (Version 1)
Quarter: 2018Q4

REPORT INFORMATION
  Report Type: Report from Study
  Country: US (occurrence: US)
  Receive Date: 20181121
  Receipt Date: 20181121
  Transmission Date: 20190205
  Serious: Yes (Hospitalization, Other)
  Sender: FDA-Public Use
  Company Number: US-GILEAD-2018-0375478

PATIENT
  Age: 18 Year
  Sex: Female

DRUGS (18)
  1. PROAIR HFA [Concomitant]
     Active Substance: ALBUTEROL SULFATE
  2. DEKAS PLUS [Concomitant]
  3. DOK [Concomitant]
     Active Substance: DOCUSATE SODIUM
  4. ALBUTEROL [SALBUTAMOL] [Concomitant]
     Active Substance: ALBUTEROL
  5. LEVALBUTEROL HCL [Concomitant]
     Active Substance: LEVALBUTEROL HYDROCHLORIDE
  6. SMZ-TMP [Concomitant]
     Active Substance: SULFAMETHOXAZOLE\TRIMETHOPRIM
  7. ESOMEPRAZOLE MAGNESIUM. [Concomitant]
     Active Substance: ESOMEPRAZOLE MAGNESIUM
  8. FEROSUL [Concomitant]
  9. FLUTICASONE. [Concomitant]
     Active Substance: FLUTICASONE
  10. BUDESONIDE. [Concomitant]
     Active Substance: BUDESONIDE
  11. SODIUM CHLORIDE. [Concomitant]
     Active Substance: SODIUM CHLORIDE
  12. AZTREONAM LYSINE [Suspect]
     Active Substance: AZTREONAM LYSINE
     Indication: CYSTIC FIBROSIS
     Dosage: 1 VIAL TID X28, OFF 28
     Route: 055
     Dates: start: 20140712
  13. TRAMADOL. [Concomitant]
     Active Substance: TRAMADOL
  14. AZITHROMYCIN ANHYDROUS. [Concomitant]
     Active Substance: AZITHROMYCIN ANHYDROUS
  15. PULMOZYME [Concomitant]
     Active Substance: DORNASE ALFA
  16. CREON [Concomitant]
     Active Substance: PANCRELIPASE AMYLASE\PANCRELIPASE LIPASE\PANCRELIPASE PROTEASE
  17. BETHKIS [Concomitant]
     Active Substance: TOBRAMYCIN
  18. FERRALET [FERROUS GLUCONATE] [Concomitant]

REACTIONS (1)
  - Cystic fibrosis [Unknown]
